FAERS Safety Report 24201819 (Version 1)
Quarter: 2024Q3

REPORT INFORMATION
  Report Type: Spontaneous
  Country: ZA (occurrence: ZA)
  Receive Date: 20240812
  Receipt Date: 20240812
  Transmission Date: 20241017
  Serious: Yes (Other)
  Sender: SANOFI AVENTIS
  Company Number: ZA-SA-SAC20240809000293

PATIENT
  Sex: Male

DRUGS (7)
  1. LEFLUNOMIDE [Suspect]
     Active Substance: LEFLUNOMIDE
     Dosage: 20 MG, QD
     Route: 065
     Dates: start: 202305
  2. METHOTREXATE [Suspect]
     Active Substance: METHOTREXATE
     Dosage: 20 MG, QW
     Route: 065
     Dates: start: 201501
  3. CELECOXIB [Suspect]
     Active Substance: CELECOXIB
     Dosage: 200 MG, QD
     Route: 065
     Dates: start: 202206
  4. PREDNISONE [Suspect]
     Active Substance: PREDNISONE
     Dosage: 5 DF, BID
     Route: 065
     Dates: start: 202108
  5. HUMIRA [Suspect]
     Active Substance: ADALIMUMAB
     Dosage: 40 MG, QOW (40 MG, ALTERNATIVE WEEKS)
     Route: 065
     Dates: start: 20240109
  6. CELECOXIB [Concomitant]
     Active Substance: CELECOXIB
     Dosage: 200 MG, QW
     Dates: start: 201909
  7. SULFASALAZINE [Concomitant]
     Active Substance: SULFASALAZINE
     Dosage: 1 DF, BID
     Dates: start: 201811, end: 202010

REACTIONS (2)
  - Rheumatoid arthritis [Unknown]
  - Condition aggravated [Unknown]
